FAERS Safety Report 4503689-1 (Version None)
Quarter: 2004Q4

REPORT INFORMATION
  Report Type: 
  Country: None (occurrence: None)
  Receive Date: 20040928
  Receipt Date: 20040609
  Transmission Date: 20050328
  Serious: No
  Sender: FDA-Public Use
  Company Number: 04P-163-0263482-00

PATIENT
  Age: 76 Year
  Sex: Female
  Weight: 43.0917 kg

DRUGS (5)
  1. HUMIRA [Suspect]
     Indication: RHEUMATOID ARTHRITIS
     Dosage: 40 MG, 1 IN 2 WK, SUBCUTANEOUS
     Route: 058
     Dates: start: 20040509, end: 20040601
  2. PREDNISONE [Concomitant]
  3. LEXAPRO [Concomitant]
  4. FENTANYL [Concomitant]
  5. OXYCODONE HCL [Concomitant]

REACTIONS (4)
  - CHEST PAIN [None]
  - DYSPNOEA [None]
  - NAUSEA [None]
  - SKIN INFECTION [None]
